FAERS Safety Report 16148800 (Version 5)
Quarter: 2019Q3

REPORT INFORMATION
  Report Type: Report from Study
  Country: CA (occurrence: CA)
  Receive Date: 20190402
  Receipt Date: 20190711
  Transmission Date: 20191004
  Serious: Yes (Hospitalization, Other)
  Sender: FDA-Public Use
  Company Number: PHHY2017CA159101

PATIENT
  Age: 62 Year
  Sex: Female

DRUGS (31)
  1. SANDOSTATIN LAR DEPOT [Suspect]
     Active Substance: OCTREOTIDE ACETATE
     Dosage: 40 MG, Q2W
     Route: 030
  2. SANDOSTATIN LAR DEPOT [Suspect]
     Active Substance: OCTREOTIDE ACETATE
     Dosage: 40 MG, Q3W
     Route: 030
  3. OCTREOTIDE. [Suspect]
     Active Substance: OCTREOTIDE
     Indication: ANALGESIC THERAPY
     Dosage: UNK, BID
     Route: 058
  4. CODEINE [Concomitant]
     Active Substance: CODEINE
     Indication: PRODUCT USED FOR UNKNOWN INDICATION
     Dosage: UNK
     Route: 065
  5. METHADONE [Concomitant]
     Active Substance: METHADONE HYDROCHLORIDE
     Dosage: 25 MG, QD
     Route: 048
  6. SANDOSTATIN LAR DEPOT [Suspect]
     Active Substance: OCTREOTIDE ACETATE
     Indication: CARCINOID SYNDROME
     Dosage: 30 MG, QMO
     Route: 030
     Dates: start: 20070503
  7. GABAPENTIN. [Concomitant]
     Active Substance: GABAPENTIN
     Indication: SEIZURE
     Route: 065
  8. VIOKASE [Concomitant]
     Active Substance: PANCRELIPASE
     Indication: PRODUCT USED FOR UNKNOWN INDICATION
     Dosage: 3-4 TABLET, QID
     Route: 065
  9. METHADONE [Concomitant]
     Active Substance: METHADONE HYDROCHLORIDE
     Indication: PRODUCT USED FOR UNKNOWN INDICATION
     Dosage: 42 MG, Q8H
     Route: 065
  10. SANDOSTATIN LAR DEPOT [Suspect]
     Active Substance: OCTREOTIDE ACETATE
     Dosage: UNK
     Route: 030
  11. SANDOSTATIN LAR DEPOT [Suspect]
     Active Substance: OCTREOTIDE ACETATE
     Dosage: UNK
     Route: 030
  12. SANDOSTATIN [Suspect]
     Active Substance: OCTREOTIDE ACETATE
     Indication: ABDOMINAL PAIN
     Dosage: 50 UG, TID
     Route: 058
     Dates: end: 20130302
  13. OCTREOTIDE. [Suspect]
     Active Substance: OCTREOTIDE
     Indication: DIARRHOEA
     Dosage: 2 DF, UNK
     Route: 058
     Dates: start: 20190215
  14. SANDOSTATIN LAR DEPOT [Suspect]
     Active Substance: OCTREOTIDE ACETATE
     Dosage: 40 MG, Q2W
     Route: 030
     Dates: start: 20181205
  15. SANDOSTATIN [Suspect]
     Active Substance: OCTREOTIDE ACETATE
     Indication: CARCINOID SYNDROME
     Dosage: 100 UG, TID
     Route: 058
     Dates: start: 20130214
  16. PREDNISONE. [Concomitant]
     Active Substance: PREDNISONE
     Dosage: 25 MG, UNK, 12 DAYS
     Route: 048
     Dates: start: 20190520
  17. SANDOSTATIN LAR DEPOT [Suspect]
     Active Substance: OCTREOTIDE ACETATE
     Dosage: 40 MG, Q2W
     Route: 030
  18. SANDOSTATIN [Suspect]
     Active Substance: OCTREOTIDE ACETATE
     Indication: DIARRHOEA
     Dosage: 100 UG, ONCE OR TWICE DAILY
     Route: 058
  19. PREDNISONE. [Concomitant]
     Active Substance: PREDNISONE
     Dosage: 50 MG, UNK 4 DAYS
     Route: 048
     Dates: start: 20190508
  20. SANDOSTATIN LAR DEPOT [Suspect]
     Active Substance: OCTREOTIDE ACETATE
     Dosage: UNK, Q2W
     Route: 030
  21. SANDOSTATIN LAR DEPOT [Suspect]
     Active Substance: OCTREOTIDE ACETATE
     Dosage: 40 MG, Q2W
     Route: 030
  22. SANDOSTATIN LAR DEPOT [Suspect]
     Active Substance: OCTREOTIDE ACETATE
     Dosage: 40 MG, Q2W
     Route: 030
     Dates: start: 20190216
  23. OCTREOTIDE. [Suspect]
     Active Substance: OCTREOTIDE
     Indication: HYPERHIDROSIS
     Dosage: 100 UG/ML, QD (ONCE OR TWICE A DAY)
     Route: 058
  24. OCTREOTIDE. [Suspect]
     Active Substance: OCTREOTIDE
     Dosage: UNK
     Route: 065
     Dates: start: 20190702
  25. METHADONE [Concomitant]
     Active Substance: METHADONE HYDROCHLORIDE
     Dosage: 36 MG, UNK
     Route: 065
  26. SANDOSTATIN LAR DEPOT [Suspect]
     Active Substance: OCTREOTIDE ACETATE
     Dosage: 40 MG, Q3W
     Route: 030
     Dates: start: 2008
  27. OCTREOTIDE. [Suspect]
     Active Substance: OCTREOTIDE
     Dosage: 100 UG, UNK (DAILY 3 DAYS BEFORE INJECTIONS)
     Route: 058
  28. GLIKAZID [Concomitant]
     Indication: PRODUCT USED FOR UNKNOWN INDICATION
     Dosage: 30 MG, QD
     Route: 065
  29. PREDNISONE. [Concomitant]
     Active Substance: PREDNISONE
     Indication: PRODUCT USED FOR UNKNOWN INDICATION
     Dosage: UNK
     Route: 042
  30. PREDNISONE. [Concomitant]
     Active Substance: PREDNISONE
     Dosage: UNK
     Route: 048
  31. PREDNISONE. [Concomitant]
     Active Substance: PREDNISONE
     Dosage: UNK
     Route: 065
     Dates: end: 20190616

REACTIONS (29)
  - Pleural effusion [Unknown]
  - Breakthrough pain [Unknown]
  - Hyperhidrosis [Unknown]
  - Inappropriate schedule of product administration [Unknown]
  - Product use in unapproved indication [Unknown]
  - Carcinoid tumour pulmonary [Unknown]
  - Diarrhoea [Unknown]
  - Peripheral swelling [Unknown]
  - Therapeutic response shortened [Unknown]
  - Blood urine present [Unknown]
  - Frequent bowel movements [Unknown]
  - Injection site discomfort [Unknown]
  - Carcinoid tumour of the small bowel [Unknown]
  - Flushing [Unknown]
  - Blood pressure increased [Unknown]
  - Anal incontinence [Unknown]
  - Dyspnoea [Recovered/Resolved]
  - Dysuria [Unknown]
  - Joint swelling [Unknown]
  - Chest pain [Unknown]
  - Scab [Recovering/Resolving]
  - Pain in extremity [Unknown]
  - Needle issue [Unknown]
  - Pneumothorax [Unknown]
  - Urinary tract infection [Unknown]
  - Abdominal pain lower [Not Recovered/Not Resolved]
  - Haemorrhoids [Unknown]
  - Emphysema [Unknown]
  - Injection site haemorrhage [Unknown]

NARRATIVE: CASE EVENT DATE: 2017
